FAERS Safety Report 7509923-8 (Version None)
Quarter: 2011Q2

REPORT INFORMATION
  Report Type: 
  Country: None (occurrence: None)
  Receive Date: 20110527
  Receipt Date: 20110520
  Transmission Date: 20111010
  Serious: Yes (Death, Other)
  Sender: FDA-Public Use
  Company Number: US-BAXTER-2011BH016819

PATIENT
  Age: 7 Year
  Sex: Female

DRUGS (2)
  1. STERILE WATER [Suspect]
     Indication: BLADDER IRRIGATION
     Route: 043
  2. LACTATED RINGER'S [Concomitant]
     Indication: PRODUCT USED FOR UNKNOWN INDICATION
     Route: 042

REACTIONS (3)
  - BRAIN OEDEMA [None]
  - HYPONATRAEMIA [None]
  - WATER INTOXICATION [None]
